FAERS Safety Report 18179063 (Version 4)
Quarter: 2021Q2

REPORT INFORMATION
  Report Type: Report from Study
  Country: GB (occurrence: GB)
  Receive Date: 20200820
  Receipt Date: 20210505
  Transmission Date: 20210717
  Serious: Yes (Hospitalization, Other)
  Sender: FDA-Public Use
  Company Number: NVSC2020GB148202

PATIENT
  Age: 43 Year
  Sex: Female

DRUGS (4)
  1. SANDOSTATIN LAR DEPOT [Suspect]
     Active Substance: OCTREOTIDE ACETATE
     Dosage: 80 MG, QMO (DRY POWDER)
     Route: 030
  2. SANDOSTATIN LAR DEPOT [Suspect]
     Active Substance: OCTREOTIDE ACETATE
     Dosage: 80 MG (FORMULATION: DRY POWDER)
     Route: 030
     Dates: start: 2018
  3. SANDOSTATIN LAR DEPOT [Suspect]
     Active Substance: OCTREOTIDE ACETATE
     Indication: NEUROENDOCRINE TUMOUR
     Dosage: 80 MG, QMO
     Route: 030
  4. SANDOSTATIN LAR DEPOT [Suspect]
     Active Substance: OCTREOTIDE ACETATE
     Dosage: 80 MG, QMO (DRY POWDER)
     Route: 030
     Dates: start: 2018

REACTIONS (15)
  - Thrombosis [Recovering/Resolving]
  - Blood pressure decreased [Unknown]
  - Vomiting [Recovering/Resolving]
  - Cholecystitis infective [Unknown]
  - Abdominal pain upper [Unknown]
  - Enteritis infectious [Recovering/Resolving]
  - Nausea [Recovered/Resolved]
  - Abdominal tenderness [Recovering/Resolving]
  - Incorrect dose administered [Unknown]
  - Decreased appetite [Recovered/Resolved]
  - Pyrexia [Unknown]
  - Diarrhoea [Recovering/Resolving]
  - Fatigue [Recovered/Resolved]
  - Abdominal pain [Not Recovered/Not Resolved]
  - Syncope [Recovering/Resolving]

NARRATIVE: CASE EVENT DATE: 202102
